FAERS Safety Report 20593585 (Version 1)
Quarter: 2022Q1

REPORT INFORMATION
  Report Type: Spontaneous
  Country: FR (occurrence: FR)
  Receive Date: 20220315
  Receipt Date: 20220315
  Transmission Date: 20220423
  Serious: Yes (Other)
  Sender: FDA-Public Use
  Company Number: None

PATIENT
  Age: 34 Year
  Sex: Male

DRUGS (24)
  1. KETOPROFEN [Suspect]
     Active Substance: KETOPROFEN
     Indication: Analgesic intervention supportive therapy
     Dosage: 600 MILLIGRAM DAILY; 1 CAPSULE AT MIDNIGHT, 6 A.M., 12 P.M., 6 P.M.
     Route: 048
     Dates: start: 20220123, end: 20220207
  2. ACUPAN [Suspect]
     Active Substance: NEFOPAM HYDROCHLORIDE
     Indication: Analgesic intervention supportive therapy
     Dosage: UNIT DOSE:100 MG
     Route: 041
     Dates: start: 20220127, end: 20220128
  3. ACUPAN [Suspect]
     Active Substance: NEFOPAM HYDROCHLORIDE
     Dosage: AN INFUSION ON 2 AND 5, UNIT DOSE: 80 MG
     Route: 041
     Dates: start: 20220202, end: 20220205
  4. ACUPAN [Suspect]
     Active Substance: NEFOPAM HYDROCHLORIDE
     Dosage: UNIT DOSE 120 MG
     Route: 041
     Dates: start: 20220123, end: 20220127
  5. ACUPAN [Suspect]
     Active Substance: NEFOPAM HYDROCHLORIDE
     Dosage: UNIT DOSE 20 MG
     Route: 048
     Dates: start: 20220207
  6. AMITRIPTYLINE HYDROCHLORIDE [Suspect]
     Active Substance: AMITRIPTYLINE HYDROCHLORIDE
     Indication: Neuralgia
     Dosage: 15 DROPS, UNIT DOSE: 15 MG
     Route: 048
     Dates: start: 20220202, end: 20220206
  7. AMITRIPTYLINE HYDROCHLORIDE [Suspect]
     Active Substance: AMITRIPTYLINE HYDROCHLORIDE
     Dosage: UNIT DOSE: 25 MG
     Route: 048
     Dates: start: 20220207
  8. AMITRIPTYLINE HYDROCHLORIDE [Suspect]
     Active Substance: AMITRIPTYLINE HYDROCHLORIDE
     Dosage: 5 ADDITIONAL DROPS AT NIGHT IF INSUFFICIENT., UNIT DOSE:5 MG
     Dates: start: 20220202, end: 20220206
  9. AMITRIPTYLINE HYDROCHLORIDE [Suspect]
     Active Substance: AMITRIPTYLINE HYDROCHLORIDE
     Dosage: 5 DROPS AT NIGHT, UNIT DOSE: 5 MG
     Route: 048
     Dates: start: 20220217
  10. PREGABALIN [Suspect]
     Active Substance: PREGABALIN
     Indication: Neuralgia
     Dosage: UNIT DOSE: 300 MG
     Route: 048
     Dates: start: 20220125, end: 20220128
  11. PREGABALIN [Suspect]
     Active Substance: PREGABALIN
     Dosage: UNIT DOSE: 600 MG
     Route: 048
     Dates: start: 20220201, end: 20220211
  12. PREGABALIN [Suspect]
     Active Substance: PREGABALIN
     Dosage: UNIT DOSE: 300 MG
     Route: 048
     Dates: start: 20220129, end: 20220201
  13. PREGABALIN [Suspect]
     Active Substance: PREGABALIN
     Dosage: UNIT DOSE: 150 MG
     Route: 048
     Dates: start: 20220123, end: 20220125
  14. PREGABALIN [Suspect]
     Active Substance: PREGABALIN
     Dosage: UNIT DOSE: 300 MG
     Route: 048
     Dates: start: 20220125, end: 20220128
  15. PREGABALIN [Suspect]
     Active Substance: PREGABALIN
     Dosage: UNIT DOSE: 400 MG
     Route: 048
     Dates: start: 20220216
  16. PREGABALIN [Suspect]
     Active Substance: PREGABALIN
     Dosage: UNIT DOSE: 900 MG
     Route: 048
     Dates: start: 20220211, end: 20220214
  17. PREGABALIN [Suspect]
     Active Substance: PREGABALIN
     Dosage: UNIT DOSE: 600 MG
     Route: 048
     Dates: start: 20220214, end: 20220216
  18. PREGABALIN [Suspect]
     Active Substance: PREGABALIN
     Dosage: UNIT DOSE: 150 MG
     Route: 048
     Dates: start: 20220128, end: 20220129
  19. DOLIPRANE [Suspect]
     Active Substance: ACETAMINOPHEN
     Indication: Analgesic intervention supportive therapy
     Dosage: UNIT DOSE: 1 GM
     Route: 048
     Dates: start: 20220120, end: 20220207
  20. MORPHINE [Suspect]
     Active Substance: MORPHINE
     Indication: Analgesic intervention supportive therapy
     Dosage: UNIT DOSE: 15 MG
     Route: 041
     Dates: start: 20220202, end: 20220207
  21. MORPHINE SULFATE [Suspect]
     Active Substance: MORPHINE SULFATE
     Indication: Analgesic intervention supportive therapy
     Dosage: UNIT DOSE: 20 MG,  PROLONGED-RELEASE MICROGRANULES IN CAPSULE
     Route: 048
     Dates: start: 20220207
  22. KETAMINE [Concomitant]
     Active Substance: KETAMINE
     Indication: Sedative therapy
     Dosage: UNIT DOSE: 5 MG
     Route: 041
     Dates: start: 20220127, end: 20220127
  23. KETAMINE [Concomitant]
     Active Substance: KETAMINE
     Dosage: UNIT DOSE: 10 MG
     Route: 041
     Dates: start: 20220122, end: 20220125
  24. KETAMINE [Concomitant]
     Active Substance: KETAMINE
     Dosage: UNIT DOSE: 15 MG
     Route: 041
     Dates: start: 20220125, end: 20220127

REACTIONS (2)
  - Hepatic cytolysis [Recovering/Resolving]
  - Cholestasis [Recovering/Resolving]

NARRATIVE: CASE EVENT DATE: 20220131
